FAERS Safety Report 6230474-5 (Version None)
Quarter: 2009Q2

REPORT INFORMATION
  Report Type: 
  Country: None (occurrence: None)
  Receive Date: 20090611
  Receipt Date: 20090603
  Transmission Date: 20091009
  Serious: Yes (Life-Threatening, Other)
  Sender: FDA-Public Use
  Company Number: IMP_04393_2009

PATIENT
  Sex: Female
  Weight: 64.8644 kg

DRUGS (8)
  1. CLARITIN-D [Suspect]
     Indication: EAR PRURITUS
     Dosage: (LORATIDINE 5 MG / PSEUDOEPHEDRINE 120 MG )
     Dates: start: 20090506, end: 20090508
  2. CLARITIN-D [Suspect]
     Indication: EYE PRURITUS
     Dosage: (LORATIDINE 5 MG / PSEUDOEPHEDRINE 120 MG )
     Dates: start: 20090506, end: 20090508
  3. CLARITIN-D [Suspect]
     Indication: LACRIMATION INCREASED
     Dosage: (LORATIDINE 5 MG / PSEUDOEPHEDRINE 120 MG )
     Dates: start: 20090506, end: 20090508
  4. CLARITIN-D [Suspect]
     Indication: MULTIPLE ALLERGIES
     Dosage: (LORATIDINE 5 MG / PSEUDOEPHEDRINE 120 MG )
     Dates: start: 20090506, end: 20090508
  5. CLARITIN-D [Suspect]
     Indication: OCULAR HYPERAEMIA
     Dosage: (LORATIDINE 5 MG / PSEUDOEPHEDRINE 120 MG )
     Dates: start: 20090506, end: 20090508
  6. CLARITIN-D [Suspect]
     Indication: POSTNASAL DRIP
     Dosage: (LORATIDINE 5 MG / PSEUDOEPHEDRINE 120 MG )
     Dates: start: 20090506, end: 20090508
  7. CLARITIN-D [Suspect]
     Indication: SNEEZING
     Dosage: (LORATIDINE 5 MG / PSEUDOEPHEDRINE 120 MG )
     Dates: start: 20090506, end: 20090508
  8. CLARITIN-D [Suspect]
     Indication: THROAT IRRITATION
     Dosage: (LORATIDINE 5 MG / PSEUDOEPHEDRINE 120 MG )
     Dates: start: 20090506, end: 20090508

REACTIONS (7)
  - COUGH [None]
  - DYSPHONIA [None]
  - NO REACTION ON PREVIOUS EXPOSURE TO DRUG [None]
  - REACTION TO DRUG EXCIPIENTS [None]
  - SHOCK [None]
  - SWOLLEN TONGUE [None]
  - THROAT TIGHTNESS [None]
